FAERS Safety Report 22045087 (Version 2)
Quarter: 2023Q1

REPORT INFORMATION
  Report Type: Spontaneous
  Country: CN (occurrence: CN)
  Receive Date: 20230228
  Receipt Date: 20230301
  Transmission Date: 20230417
  Serious: Yes (Hospitalization, Other)
  Sender: FDA-Public Use
  Company Number: CN-MLMSERVICE-20230215-4110635-1

PATIENT
  Age: 59 Year
  Sex: Male

DRUGS (1)
  1. METHYLPREDNISOLONE [Suspect]
     Active Substance: METHYLPREDNISOLONE
     Indication: Crohn^s disease
     Dosage: 0.75 MG/KG (FOR 3 YEARS)

REACTIONS (2)
  - Pneumonia cryptococcal [Recovered/Resolved]
  - Off label use [Unknown]
